FAERS Safety Report 15624741 (Version 2)
Quarter: 2018Q4

REPORT INFORMATION
  Report Type: Spontaneous
  Country: US (occurrence: US)
  Receive Date: 20181116
  Receipt Date: 20181216
  Transmission Date: 20190205
  Serious: No
  Sender: FDA-Public Use
  Company Number: US-AMGEN INC.-USASP2018162982

PATIENT
  Age: 46 Year
  Sex: Male
  Weight: 81.18 kg

DRUGS (1)
  1. AIMOVIG [Suspect]
     Active Substance: ERENUMAB-AOOE
     Indication: MIGRAINE
     Dosage: 70 MG, ONE SINGLE DOSE
     Route: 030
     Dates: start: 2018

REACTIONS (2)
  - Incorrect route of product administration [Unknown]
  - Chest pain [Unknown]

NARRATIVE: CASE EVENT DATE: 20181023
